FAERS Safety Report 21987326 (Version 1)
Quarter: 2023Q1

REPORT INFORMATION
  Report Type: Other
  Country: GB (occurrence: GB)
  Receive Date: 20230214
  Receipt Date: 20230214
  Transmission Date: 20230418
  Serious: Yes (Other)
  Sender: FDA-Public Use
  Company Number: GB-CELLTRION INC.-2023GB003026

PATIENT

DRUGS (18)
  1. RITUXIMAB [Suspect]
     Active Substance: RITUXIMAB
     Indication: Diffuse large B-cell lymphoma
     Dosage: UNK
     Dates: start: 20220101, end: 20220301
  2. RITUXIMAB [Suspect]
     Active Substance: RITUXIMAB
     Dosage: UNK
     Dates: start: 20220101, end: 20220301
  3. RITUXIMAB [Suspect]
     Active Substance: RITUXIMAB
     Dosage: UNK
     Dates: start: 20220101, end: 20220301
  4. RITUXIMAB [Suspect]
     Active Substance: RITUXIMAB
     Dosage: UNK; STARTED THERAPY WITH R-GDP
     Dates: start: 20220501, end: 20220901
  5. RITUXIMAB [Suspect]
     Active Substance: RITUXIMAB
     Dosage: UNK; STARTED THERAPY WITH R-GDP
     Dates: start: 20220501, end: 20220901
  6. RITUXIMAB [Suspect]
     Active Substance: RITUXIMAB
     Dosage: UNK; STARTED THERAPY WITH R-GDP
     Dates: start: 20220501, end: 20220901
  7. RITUXIMAB [Suspect]
     Active Substance: RITUXIMAB
     Dosage: UNK; STARTED THERAPY WITH POLA-BR BRIDGE TO CAR-T
     Dates: start: 20221101, end: 20221101
  8. RITUXIMAB [Suspect]
     Active Substance: RITUXIMAB
     Dosage: UNK; STARTED THERAPY WITH POLA-BR BRIDGE TO CAR-T
     Dates: start: 20221101, end: 20221101
  9. RITUXIMAB [Suspect]
     Active Substance: RITUXIMAB
     Dosage: UNK; STARTED THERAPY WITH POLA-BR BRIDGE TO CAR-T
     Dates: start: 20221101, end: 20221101
  10. BENDAMUSTINE [Suspect]
     Active Substance: BENDAMUSTINE
     Indication: Diffuse large B-cell lymphoma
     Dosage: UNK; THERAPY WITH POLA-BR
     Dates: start: 20221101, end: 20221101
  11. CISPLATIN [Suspect]
     Active Substance: CISPLATIN
     Indication: Diffuse large B-cell lymphoma
     Dosage: UNK; THERAPY WITH R-GDP
     Dates: start: 20220501, end: 20220901
  12. CYCLOPHOSPHAMIDE [Suspect]
     Active Substance: CYCLOPHOSPHAMIDE
     Indication: Diffuse large B-cell lymphoma
     Dosage: UNK
     Dates: start: 20220101, end: 20220301
  13. DEXAMETHASONE [Suspect]
     Active Substance: DEXAMETHASONE
     Indication: Diffuse large B-cell lymphoma
     Dosage: UNK; THERAPY WITH R-GDP
     Dates: start: 20220501, end: 20220901
  14. DOXORUBICIN [Suspect]
     Active Substance: DOXORUBICIN
     Indication: Diffuse large B-cell lymphoma
     Dosage: UNK
     Dates: start: 20220101, end: 20220301
  15. GEMCITABINE [Suspect]
     Active Substance: GEMCITABINE
     Indication: Diffuse large B-cell lymphoma
     Dosage: UNK; THERAPY WITH R-GDP
     Dates: start: 20220501, end: 20220901
  16. POLATUZUMAB VEDOTIN [Suspect]
     Active Substance: POLATUZUMAB VEDOTIN
     Indication: Diffuse large B-cell lymphoma
     Dosage: UNK; THERAPY WITH POLA-BR
     Dates: start: 20221101, end: 20221101
  17. PREDNISONE [Suspect]
     Active Substance: PREDNISONE
     Indication: Diffuse large B-cell lymphoma
     Dosage: UNK
     Dates: start: 20220101, end: 20220301
  18. VINCRISTINE [Suspect]
     Active Substance: VINCRISTINE
     Indication: Diffuse large B-cell lymphoma
     Dosage: UNK
     Dates: start: 20220101, end: 20220301

REACTIONS (2)
  - Disease progression [Unknown]
  - Product use issue [Unknown]
